FAERS Safety Report 6568667-X (Version None)
Quarter: 2010Q1

REPORT INFORMATION
  Report Type: 
  Country: None (occurrence: None)
  Receive Date: 20100203
  Receipt Date: 20100122
  Transmission Date: 20100710
  Serious: Yes (Hospitalization)
  Sender: FDA-Public Use
  Company Number: PHEH2010US01249

PATIENT
  Sex: Female

DRUGS (2)
  1. EXJADE [Suspect]
     Dosage: 2000 MG DAILY
     Route: 048
  2. GROWTH FACTORS [Concomitant]
     Dosage: UNK, UNK

REACTIONS (2)
  - NASOPHARYNGITIS [None]
  - PNEUMONIA [None]
